FAERS Safety Report 4491620-7 (Version None)
Quarter: 2004Q4

REPORT INFORMATION
  Report Type: 
  Country: None (occurrence: None)
  Receive Date: 20041029
  Receipt Date: 20041022
  Transmission Date: 20050328
  Serious: Yes (Death, Hospitalization, Other)
  Sender: FDA-Public Use
  Company Number: 163-20785-04080123

PATIENT
  Age: 75 Year
  Sex: Male

DRUGS (11)
  1. THALOMID [Suspect]
     Indication: MULTIPLE MYELOMA
     Dosage: 100 MG, DAILY , ORAL
     Route: 048
     Dates: start: 20021001, end: 20040801
  2. DECADRON [Concomitant]
  3. COUMADIN [Concomitant]
  4. PROCRIT [Concomitant]
  5. ACETYLSALICYLIC ACID SRT [Concomitant]
  6. AMIODARONE HCL [Concomitant]
  7. CARDIZEM [Concomitant]
  8. IMDUR [Concomitant]
  9. NORVASC [Concomitant]
  10. LIPITOR [Concomitant]
  11. GEMFIBROZIL [Concomitant]

REACTIONS (9)
  - ATRIAL FIBRILLATION [None]
  - BRADYCARDIA [None]
  - CARDIAC ARREST [None]
  - CHEST PAIN [None]
  - CORONARY ARTERY DISEASE [None]
  - DIZZINESS [None]
  - MYOCARDIAL INFARCTION [None]
  - RENAL FAILURE [None]
  - VASOSPASM [None]
